FAERS Safety Report 5375354-2 (Version None)
Quarter: 2007Q2

REPORT INFORMATION
  Report Type: 
  Country: None (occurrence: None)
  Receive Date: 20070629
  Receipt Date: 20070620
  Transmission Date: 20071010
  Serious: Yes (Other)
  Sender: FDA-Public Use
  Company Number: ZA-ASTRAZENECA-2007SE02621

PATIENT
  Sex: Male
  Weight: 86 kg

DRUGS (3)
  1. NEXIUM [Suspect]
     Indication: GASTROOESOPHAGEAL REFLUX DISEASE
     Dosage: 20-40 MG DAILY
     Route: 048
     Dates: start: 20050101, end: 20070201
  2. NEXIUM [Suspect]
     Route: 048
     Dates: start: 20070101
  3. CRESTOR [Concomitant]
     Indication: HYPERLIPIDAEMIA
     Route: 048
     Dates: start: 20060601

REACTIONS (3)
  - CHEST PAIN [None]
  - GASTRIC POLYPS [None]
  - OESOPHAGEAL SPASM [None]
